FAERS Safety Report 6690712-1 (Version None)
Quarter: 2010Q2

REPORT INFORMATION
  Report Type: 
  Country: None (occurrence: None)
  Receive Date: 20100420
  Receipt Date: 20100420
  Transmission Date: 20101027
  Serious: Yes (Death, Other)
  Sender: FDA-Public Use
  Company Number: None

PATIENT
  Sex: Male

DRUGS (1)
  1. LOVENOX [Suspect]
     Dosage: 80MG DAILY SUBCUTANEOUS LAST DISPENSED 03/10/2010
     Route: 058
     Dates: end: 20100310

REACTIONS (1)
  - DEATH [None]
